FAERS Safety Report 4788526-2 (Version None)
Quarter: 2005Q4

REPORT INFORMATION
  Report Type: 
  Country: None (occurrence: None)
  Receive Date: 20051005
  Receipt Date: 20051005
  Transmission Date: 20060501
  Serious: Yes (Hospitalization)
  Sender: FDA-Public Use
  Company Number: None

PATIENT
  Age: 50 Year
  Sex: Female

DRUGS (5)
  1. QUETIAPINE FUMARATE [Suspect]
     Indication: BIPOLAR DISORDER
     Dosage: 100 MG PO
     Route: 048
     Dates: start: 20050212
  2. LAMOTRIGINE [Concomitant]
  3. FLUOXETINE [Concomitant]
  4. CLONAZEPAM [Concomitant]
  5. APAP TAB [Concomitant]

REACTIONS (7)
  - CONTUSION [None]
  - DIFFICULTY IN WALKING [None]
  - FALL [None]
  - FEELING JITTERY [None]
  - HEADACHE [None]
  - SYNCOPE [None]
  - TREMOR [None]
